FAERS Safety Report 4536520-9 (Version None)
Quarter: 2004Q4

REPORT INFORMATION
  Report Type: 
  Country: None (occurrence: None)
  Receive Date: 20041223
  Receipt Date: 20041214
  Transmission Date: 20050328
  Serious: Yes (Hospitalization)
  Sender: FDA-Public Use
  Company Number: US-JNJFOC-20040808978

PATIENT
  Sex: Female
  Weight: 91.17 kg

DRUGS (9)
  1. REMICADE [Suspect]
     Indication: IRRITABLE BOWEL SYNDROME
     Route: 042
  2. REMICADE [Suspect]
     Dosage: 4 VIALS
     Route: 042
  3. REMICADE [Suspect]
     Indication: CROHN'S DISEASE
     Route: 042
  4. ZYRTEC [Concomitant]
     Indication: PREMEDICATION
  5. MEDROL [Concomitant]
  6. MEDROL [Concomitant]
  7. LEUKERAN [Concomitant]
  8. ACTZ [Concomitant]
  9. TYLENOL (CAPLET) [Concomitant]

REACTIONS (13)
  - BEHCET'S SYNDROME [None]
  - DIABETES MELLITUS [None]
  - DIARRHOEA HAEMORRHAGIC [None]
  - DRUG HYPERSENSITIVITY [None]
  - HYPERSENSITIVITY [None]
  - INFUSION RELATED REACTION [None]
  - KIDNEY INFECTION [None]
  - OVARIAN MASS [None]
  - PYREXIA [None]
  - SERUM SICKNESS [None]
  - SKIN INFECTION [None]
  - VOMITING [None]
  - WHITE BLOOD CELL COUNT DECREASED [None]
